FAERS Safety Report 11430507 (Version 1)
Quarter: 2015Q3

REPORT INFORMATION
  Report Type: Spontaneous
  Country: US (occurrence: US)
  Receive Date: 20150828
  Receipt Date: 20150828
  Transmission Date: 20151125
  Serious: No
  Sender: FDA-Public Use
  Company Number: US-ROCHE-1174005

PATIENT
  Sex: Female

DRUGS (3)
  1. RIBAVIRIN. [Suspect]
     Active Substance: RIBAVIRIN
     Indication: HEPATITIS C
     Dosage: IN DIVIDED TWO DOSE
     Route: 048
     Dates: start: 20121127
  2. PEGASYS [Suspect]
     Active Substance: PEGINTERFERON ALFA-2A
     Indication: HEPATITIS C
     Route: 058
     Dates: start: 20121127
  3. INCIVEK [Suspect]
     Active Substance: TELAPREVIR
     Indication: HEPATITIS C
     Route: 065
     Dates: start: 20121127

REACTIONS (14)
  - Vertigo [Unknown]
  - Dizziness [Unknown]
  - Vision blurred [Unknown]
  - Anaemia [Unknown]
  - Arthralgia [Unknown]
  - Abdominal pain upper [Unknown]
  - Lethargy [Unknown]
  - Fatigue [Unknown]
  - Pyrexia [Unknown]
  - Drug dose omission [Unknown]
  - Anxiety [Unknown]
  - Hypoaesthesia [Unknown]
  - Paraesthesia [Unknown]
  - Depression [Unknown]
